FAERS Safety Report 16451553 (Version 1)
Quarter: 2019Q2

REPORT INFORMATION
  Report Type: Spontaneous
  Country: US (occurrence: US)
  Receive Date: 20190619
  Receipt Date: 20190619
  Transmission Date: 20190711
  Serious: No
  Sender: FDA-Public Use
  Company Number: US-GLAXOSMITHKLINE-US2019AMR109416

PATIENT
  Age: 81 Year
  Sex: Female

DRUGS (1)
  1. RYTHMOL SR [Suspect]
     Active Substance: PROPAFENONE HYDROCHLORIDE
     Indication: PRODUCT USED FOR UNKNOWN INDICATION
     Dosage: 225 MG, UNK
     Route: 065
     Dates: start: 2006

REACTIONS (1)
  - Genital herpes [Unknown]

NARRATIVE: CASE EVENT DATE: 20190613
